FAERS Safety Report 5114531-2 (Version None)
Quarter: 2006Q3

REPORT INFORMATION
  Report Type: 
  Country: None (occurrence: None)
  Receive Date: 20060926
  Receipt Date: 20060920
  Transmission Date: 20061208
  Serious: Yes (Death)
  Sender: FDA-Public Use
  Company Number: PHHO2006JP15858

PATIENT
  Age: 70 Year
  Sex: Female
  Weight: 62 kg

DRUGS (5)
  1. BASEN [Concomitant]
  2. NORVASC [Concomitant]
  3. LIPOVAS [Concomitant]
  4. AMARYL [Concomitant]
  5. DIOVAN [Suspect]
     Indication: HYPERTENSION
     Dosage: 80 MG, QD
     Route: 048
     Dates: start: 20040204, end: 20050122

REACTIONS (1)
  - SUDDEN DEATH [None]
